FAERS Safety Report 6948734-9 (Version None)
Quarter: 2010Q3

REPORT INFORMATION
  Report Type: 
  Country: None (occurrence: None)
  Receive Date: 20100828
  Receipt Date: 20091110
  Transmission Date: 20110219
  Serious: No
  Sender: FDA-Public Use
  Company Number: US-ABBOTT-09P-163-0608207-00

PATIENT
  Sex: Male
  Weight: 72.64 kg

DRUGS (9)
  1. NIASPAN [Suspect]
     Indication: BLOOD TRIGLYCERIDES INCREASED
     Dates: start: 20080101, end: 20090801
  2. NIASPAN [Suspect]
     Dosage: 1/2 TAB (250MG) IN AM + PM
     Route: 048
     Dates: start: 20090801, end: 20091110
  3. DIOVAN [Concomitant]
     Indication: HYPERTENSION
  4. ALLOPURINOL [Concomitant]
     Indication: GOUT
     Route: 048
  5. CLONAZEPAM [Concomitant]
     Indication: PRODUCT USED FOR UNKNOWN INDICATION
  6. ZOCOR [Concomitant]
     Indication: BLOOD CHOLESTEROL INCREASED
     Route: 048
  7. ASPIRIN [Concomitant]
     Indication: PRODUCT USED FOR UNKNOWN INDICATION
     Dosage: 3 MOS 325 MG
     Route: 048
     Dates: end: 20090801
  8. ASPIRIN [Concomitant]
     Dosage: 30 MIN BEFORE NIASPAN
     Route: 048
     Dates: start: 20090801
  9. KLONOPIN [Concomitant]
     Indication: SLEEP DISORDER THERAPY
     Dosage: AT BEDTIME
     Route: 048

REACTIONS (3)
  - FLUSHING [None]
  - PRURITUS [None]
  - WRONG TECHNIQUE IN DRUG USAGE PROCESS [None]
